FAERS Safety Report 9423273 (Version 2)
Quarter: 2013Q3

REPORT INFORMATION
  Report Type: Report from Study
  Country: US (occurrence: US)
  Receive Date: 20130726
  Receipt Date: 20130909
  Transmission Date: 20140515
  Serious: Yes (Death, Other)
  Sender: FDA-Public Use
  Company Number: US-TEVA-421550USA

PATIENT
  Sex: Male

DRUGS (3)
  1. CLOZAPINE [Suspect]
     Route: 048
  2. ATIVAN [Concomitant]
     Dosage: 2 MILLIGRAM DAILY;
  3. AMBIEN [Concomitant]
     Dosage: 12.5 MILLIGRAM DAILY;

REACTIONS (2)
  - Arrhythmia [Fatal]
  - Pulmonary oedema [Fatal]
